FAERS Safety Report 5631462-X (Version None)
Quarter: 2008Q1

REPORT INFORMATION
  Report Type: 
  Country: None (occurrence: None)
  Receive Date: 20080215
  Receipt Date: 20080208
  Transmission Date: 20080703
  Serious: Yes (Death)
  Sender: FDA-Public Use
  Company Number: 2007S1010600

PATIENT
  Age: 16 Year
  Sex: Female

DRUGS (8)
  1. AMNESTEEM [Suspect]
     Indication: BONE SARCOMA
     Dosage: 80 MG;TWICE A DAY;ORAL
     Route: 048
  2. AMNESTEEM [Suspect]
     Indication: BONE SARCOMA
     Dosage: 80 MG;TWICE A DAY;ORAL
     Route: 048
     Dates: start: 20061001
  3. ONDANSETRON [Concomitant]
  4. DEXAMETHASONE TAB [Concomitant]
  5. BACTRIM [Concomitant]
  6. PRILOSEC [Concomitant]
  7. ARANESP [Concomitant]
  8. ARIXTRA [Concomitant]

REACTIONS (1)
  - DEATH [None]
